FAERS Safety Report 23354456 (Version 6)
Quarter: 2024Q1

REPORT INFORMATION
  Report Type: Spontaneous
  Country: US (occurrence: None)
  Receive Date: 20240101
  Receipt Date: 20240129
  Transmission Date: 20240410
  Serious: Yes (Death)
  Sender: FDA-Public Use
  Company Number: US-ROCHE-3483183

PATIENT
  Age: 70 Year
  Sex: Female
  Weight: 75 kg

DRUGS (2)
  1. TNKASE [Suspect]
     Active Substance: TENECTEPLASE
     Indication: Ischaemic stroke
     Dosage: GIVEN OVER 5 SECONDS, ONE TIME DOSE ;ONGOING: NO. IV POWDER RECONSTITUTED
     Route: 040
     Dates: start: 20231222, end: 20231222
  2. ASPIRIN [Concomitant]
     Active Substance: ASPIRIN
     Indication: Product used for unknown indication

REACTIONS (2)
  - Haemorrhage intracranial [Fatal]
  - Off label use [Unknown]

NARRATIVE: CASE EVENT DATE: 20231222
